FAERS Safety Report 10615411 (Version 1)
Quarter: 2014Q4

REPORT INFORMATION
  Report Type: Spontaneous
  Country: US (occurrence: None)
  Receive Date: 20141125
  Receipt Date: 20141125
  Transmission Date: 20150529
  Serious: Yes (Other)
  Sender: FDA-Public Use
  Company Number: None

PATIENT
  Age: 51 Year
  Sex: Female
  Weight: 45.36 kg

DRUGS (2)
  1. PENICILLIN V POTASSIUM. [Suspect]
     Active Substance: PENICILLIN V POTASSIUM
     Indication: STAPHYLOCOCCAL INFECTION
     Dosage: 3 TABLETS PER DAY, THREE TIMES DAILY, ORAL
     Route: 048
     Dates: start: 20141121, end: 20141124
  2. PENICILLIN V POTASSIUM. [Suspect]
     Active Substance: PENICILLIN V POTASSIUM
     Indication: SINUSITIS
     Dosage: 3 TABLETS PER DAY, THREE TIMES DAILY, ORAL
     Route: 048
     Dates: start: 20141121, end: 20141124

REACTIONS (1)
  - Headache [None]

NARRATIVE: CASE EVENT DATE: 20141124
